FAERS Safety Report 7493219-7 (Version None)
Quarter: 2011Q2

REPORT INFORMATION
  Report Type: 
  Country: None (occurrence: None)
  Receive Date: 20110520
  Receipt Date: 20110513
  Transmission Date: 20111010
  Serious: Yes (Hospitalization, Other)
  Sender: FDA-Public Use
  Company Number: FR-PFIZER INC-2010076346

PATIENT
  Sex: Female
  Weight: 61 kg

DRUGS (2)
  1. DIOSMINE [Suspect]
     Dosage: UNK
  2. EXEMESTANE [Suspect]
     Indication: BREAST CANCER
     Dosage: UNK

REACTIONS (3)
  - FRACTURE [None]
  - HYPERTENSION [None]
  - HYPONATRAEMIA [None]
